FAERS Safety Report 6070066-4 (Version None)
Quarter: 2009Q1

REPORT INFORMATION
  Report Type: 
  Country: None (occurrence: None)
  Receive Date: 20090209
  Receipt Date: 20090204
  Transmission Date: 20090719
  Serious: Yes (Death, Hospitalization)
  Sender: FDA-Public Use
  Company Number: PHHY2009BR04085

PATIENT
  Age: 73 Year
  Sex: Male

DRUGS (2)
  1. STALEVO 100 [Suspect]
     Indication: PARKINSON'S DISEASE
     Dosage: 3 TABLETS DAILY
     Route: 048
  2. ALBUMIN (HUMAN) [Concomitant]

REACTIONS (8)
  - CATHETER SITE INFLAMMATION [None]
  - CONCOMITANT DISEASE PROGRESSION [None]
  - GASTRIC HAEMORRHAGE [None]
  - NEOPLASM PROGRESSION [None]
  - PNEUMONIA [None]
  - PROSTATIC HAEMORRHAGE [None]
  - SEPTIC SHOCK [None]
  - SURGERY [None]
